FAERS Safety Report 17128785 (Version 1)
Quarter: 2019Q4

REPORT INFORMATION
  Report Type: Spontaneous
  Country: US (occurrence: US)
  Receive Date: 20191206
  Receipt Date: 20191206
  Transmission Date: 20200122
  Serious: Yes (Death)
  Sender: FDA-Public Use
  Company Number: None

PATIENT
  Age: 75 Year
  Sex: Male

DRUGS (9)
  1. SIMVASTATIN 20MG [Concomitant]
     Active Substance: SIMVASTATIN
  2. MAG-OXIDE 400MG [Concomitant]
  3. TAMSULOSIN 0.4MG [Concomitant]
     Active Substance: TAMSULOSIN
  4. MULTIVITAMIN [Concomitant]
     Active Substance: VITAMINS
  5. MYCOPHENOLIC ACID. [Suspect]
     Active Substance: MYCOPHENOLIC ACID
  6. TACROLIMUS 1MG [Concomitant]
     Active Substance: TACROLIMUS
  7. FENOFIBRATE 145MG [Concomitant]
  8. METOPROLOL TARTRATE 25MG [Concomitant]
     Active Substance: METOPROLOL TARTRATE
  9. SODIUM BICARBONATE. [Concomitant]
     Active Substance: SODIUM BICARBONATE

REACTIONS (1)
  - Death [None]
